FAERS Safety Report 7632885-X (Version None)
Quarter: 2011Q3

REPORT INFORMATION
  Report Type: 
  Country: None (occurrence: None)
  Receive Date: 20110725
  Receipt Date: 20110713
  Transmission Date: 20111222
  Serious: Yes (Hospitalization)
  Sender: FDA-Public Use
  Company Number: JP-ROCHE-644399

PATIENT
  Sex: Female
  Weight: 51 kg

DRUGS (65)
  1. PREDNISOLONE [Suspect]
     Dosage: DOSE FORM: PERORAL AGENT.
     Route: 048
     Dates: start: 20080418, end: 20080727
  2. PREDNISOLONE [Suspect]
     Dosage: DOSE FORM: PERORAL AGENT.
     Route: 048
     Dates: start: 20080908, end: 20080921
  3. PREDNISOLONE [Suspect]
     Route: 048
     Dates: start: 20081111, end: 20090709
  4. PREDNISOLONE [Suspect]
     Dosage: DOSE FORM: PERORAL AGENT.  DOSE DECREASED
     Route: 048
  5. TOCILIZUMAB [Suspect]
     Route: 041
     Dates: start: 20090105, end: 20090706
  6. PREDNISOLONE [Suspect]
     Dosage: DOSE FORM: PERORAL AGENT
     Route: 048
  7. FUNGIZONE [Concomitant]
     Route: 048
     Dates: end: 20090709
  8. GASTROM [Concomitant]
     Dosage: DRUG REPORTED AS ECABET SODIUM.
     Route: 048
     Dates: end: 20090709
  9. ZETIA [Concomitant]
     Route: 048
  10. PREDNISOLONE [Suspect]
     Dosage: DOSE FORM: ORAL FORMULATION (NOT OTHERWISE SPECIFIED).
     Route: 048
     Dates: start: 20080728, end: 20080824
  11. PREDNISOLONE [Suspect]
     Dosage: DOSE FORM: PERORAL AGENT.
     Route: 048
     Dates: start: 20080825, end: 20080907
  12. PREDNISOLONE [Suspect]
     Dosage: DOSE FORM: PERORAL AGENT.
     Route: 048
     Dates: start: 20081006, end: 20081027
  13. PREDNISOLONE [Suspect]
     Dosage: DOSE FORM: PERORAL AGENT
     Route: 048
     Dates: start: 20100310
  14. ACTOS [Concomitant]
     Route: 048
     Dates: start: 20080703, end: 20090316
  15. CIPROFLOXACIN HCL [Concomitant]
     Dosage: ROUTE: INTRAVENOUS (NOR OTHERWISE SPECIFIED)
     Route: 042
     Dates: start: 20090710, end: 20090712
  16. CIPROFLOXACIN HCL [Concomitant]
     Dosage: ROUTE: INTRAVENOUS (NOR OTHERWISE SPECIFIED)
     Route: 042
     Dates: start: 20090713, end: 20090713
  17. VITAMEDIN [Concomitant]
     Dosage: ROUTE: INTRAVENOUS (NOR OTHERWISE SPECIFIED)
     Route: 042
     Dates: start: 20090710, end: 20090713
  18. PREDNISOLONE SODIUM SUCCINATE INJ [Concomitant]
     Route: 042
     Dates: start: 20090712, end: 20090713
  19. FOSMICIN S [Concomitant]
     Dosage: ROUTE: INTRAVENOUS (NOT OTHERWISE SPECIFIED)
     Route: 042
     Dates: start: 20090713, end: 20090713
  20. NEORAL [Concomitant]
     Route: 048
  21. PREDNISOLONE [Suspect]
     Dosage: DOSE FORM: PERORAL AGENT.
     Route: 048
     Dates: start: 20080922, end: 20081005
  22. PREDNISOLONE [Suspect]
     Dosage: DOSE FORM: PERORAL AGENT.
     Route: 048
     Dates: start: 20090717, end: 20090724
  23. PREDNISOLONE [Suspect]
     Route: 048
     Dates: start: 20090725
  24. PREDNISOLONE [Suspect]
     Dosage: DOSE FORM: PERORAL AGENT. NOTE: IN THE MORNING: 15MG, IN THE DAYTIME :10MG, IN THE EVENING: 10MG
     Route: 048
     Dates: start: 20100226, end: 20100309
  25. METHOTREXATE [Suspect]
     Route: 048
     Dates: start: 20090529, end: 20090709
  26. IMURAN [Suspect]
     Route: 048
     Dates: start: 20081126, end: 20090215
  27. LANSOPRAZOLE [Concomitant]
     Route: 048
     Dates: start: 20090717
  28. METILON [Concomitant]
     Dosage: ROUTE: INTRAVENOUS (NOR OTHERWISE SPECIFIED)
     Route: 042
     Dates: start: 20090710, end: 20090710
  29. NITRAZEPAM [Concomitant]
     Route: 048
  30. BENZETHONIUM CHLORIDE [Concomitant]
     Dosage: DRUG: NEOSTELIN GREEN.  DOSE FORM: INCLUDE ASPECT.  ROUTE:OROPHARINGEAL. NOTE: 3-4 TIMES/DAY
     Route: 050
  31. TOCILIZUMAB [Suspect]
     Indication: JUVENILE ARTHRITIS
     Route: 041
     Dates: start: 20080717, end: 20080922
  32. PREDNISOLONE [Suspect]
     Dosage: DOSE FORM: PERORAL AGENT. NOTE: IN THE MORNING: 15MG, IN THE DAYTIME :10MG, IN THE EVENING: 10MG
     Route: 048
  33. IMURAN [Suspect]
     Indication: JUVENILE ARTHRITIS
     Route: 048
     Dates: end: 20081125
  34. SULFAMETHOXAZOLE [Concomitant]
     Route: 048
     Dates: end: 20090709
  35. SAXIZON [Concomitant]
     Dosage: ROUTE: INTRAVENOUS (NOT OTHERWISE SPECIFIED)
     Route: 042
     Dates: start: 20090710, end: 20090710
  36. PRIMPERAN TAB [Concomitant]
     Dosage: ROUTE: INTRAVENOUS (NOR OTHERWISE SPECIFIED)
     Route: 042
     Dates: start: 20090710, end: 20090710
  37. MUCOSTA [Concomitant]
     Route: 048
  38. ALFAROL [Concomitant]
     Dosage: DRUG: ALFAROL CAPSULES(ALFACALCIDOL)
     Route: 048
  39. LOXONIN [Concomitant]
     Route: 061
  40. TOCILIZUMAB [Suspect]
     Route: 041
     Dates: start: 20081015, end: 20081110
  41. TOCILIZUMAB [Suspect]
     Route: 041
     Dates: start: 20081126, end: 20081218
  42. PREDNISOLONE [Suspect]
     Dosage: DOSE FORM: PERORAL AGENT.  NOTE: IN THE MORNING: 15 MG, IN THE DAYTIME: 15 MG, IN THE EVENING: 20 MG
     Route: 048
  43. METHOTREXATE [Suspect]
     Indication: JUVENILE ARTHRITIS
     Route: 048
     Dates: end: 20090215
  44. METHOTREXATE [Suspect]
     Route: 048
     Dates: start: 20090216, end: 20090528
  45. LOXONIN [Concomitant]
     Route: 048
     Dates: end: 20090709
  46. LIPITOR [Concomitant]
     Route: 048
     Dates: end: 20090412
  47. LANSOPRAZOLE [Concomitant]
     Dosage: DOSE FORM: INJECTION. ROUTE: INTRAVENOUS (NOT OTHERWISE SPECIFIED)
     Route: 048
     Dates: start: 20090713, end: 20090713
  48. NEORAL [Concomitant]
     Route: 048
  49. PREDNISOLONE [Suspect]
     Indication: JUVENILE ARTHRITIS
     Dosage: DOSE FORM: PERORAL AGENT.
     Route: 048
     Dates: end: 20080417
  50. PREDNISOLONE [Suspect]
     Dosage: DOSE FORM: PERORAL AGENT.  DOSE DECREASED
     Route: 048
     Dates: start: 20091218, end: 20100121
  51. PREDNISOLONE [Suspect]
     Dosage: DOSE FORM: PERORAL AGENT
     Route: 048
     Dates: start: 20100122, end: 20100225
  52. IMURAN [Suspect]
     Route: 048
     Dates: start: 20090216, end: 20090709
  53. FOLIC ACID [Concomitant]
     Dosage: DRUG FROM: PERORAL AGENT.
     Route: 048
     Dates: end: 20090709
  54. LANSOPRAZOLE [Concomitant]
     Route: 048
     Dates: end: 20090709
  55. FUNGIZONE [Concomitant]
     Route: 048
     Dates: start: 20090717
  56. MAGNESIUM OXIDE [Concomitant]
     Dosage: DOSE FORM: POWDERED MEDICINE
     Route: 048
     Dates: start: 20090717
  57. NEORAL [Concomitant]
     Route: 048
  58. TOCILIZUMAB [Suspect]
     Route: 041
     Dates: start: 20091224
  59. PREDNISOLONE [Suspect]
     Dosage: DOSE FORM: PERORAL AGENT.
     Route: 048
     Dates: start: 20081028, end: 20081110
  60. LOXONIN [Concomitant]
     Route: 048
  61. FOSAMAX [Concomitant]
     Dosage: DRUG REPORTED AS ALENDRONATE SODIUM HYDRATE.
     Route: 048
     Dates: end: 20090709
  62. FOSAMAX [Concomitant]
     Dosage: DRUG REPORTED AS ALENDRONATE SODIUM HYDRATE.
     Route: 048
  63. PREDNISOLONE SODIUM SUCCINATE INJ [Concomitant]
     Dosage: ROUTE: INTRAVENOUS (NOR OTHERWISE SPECIFIED)
     Route: 042
     Dates: start: 20090711, end: 20090711
  64. FAMOTIDINE [Concomitant]
     Dosage: ROUTE: INTRAVENOUS (NOR OTHERWISE SPECIFIED)
     Route: 042
     Dates: start: 20090714, end: 20090716
  65. FOSMICIN S [Concomitant]
     Dosage: ROUTE: INTRAVENOUS (NOT OTHERWISE SPECIFIED)
     Route: 042
     Dates: start: 20090714, end: 20090715

REACTIONS (6)
  - HISTIOCYTOSIS HAEMATOPHAGIC [None]
  - ARTHRALGIA [None]
  - LIVER DISORDER [None]
  - BRONCHITIS [None]
  - HYPERTENSION [None]
  - OEDEMA PERIPHERAL [None]
